FAERS Safety Report 19987571 (Version 1)
Quarter: 2021Q4

REPORT INFORMATION
  Report Type: Spontaneous
  Country: CA (occurrence: CA)
  Receive Date: 20211022
  Receipt Date: 20211022
  Transmission Date: 20220303
  Serious: Yes (Other)
  Sender: FDA-Public Use
  Company Number: CA-BAUSCH-BL-2021-035095

PATIENT
  Age: 56 Year
  Sex: Female

DRUGS (3)
  1. ARESTIN [Suspect]
     Active Substance: MINOCYCLINE HYDROCHLORIDE
     Indication: Tooth abscess
     Route: 065
     Dates: start: 201905
  2. ARESTIN [Suspect]
     Active Substance: MINOCYCLINE HYDROCHLORIDE
  3. RITUXIMAB [Concomitant]
     Active Substance: RITUXIMAB
     Indication: Product used for unknown indication

REACTIONS (3)
  - Immunoglobulin G4 related disease [Unknown]
  - Near death experience [Unknown]
  - Deformity [Unknown]

NARRATIVE: CASE EVENT DATE: 20190501
